FAERS Safety Report 9680363 (Version 1)
Quarter: 2013Q4

REPORT INFORMATION
  Report Type: Spontaneous
  Country: SI (occurrence: SI)
  Receive Date: 20131111
  Receipt Date: 20131111
  Transmission Date: 20140711
  Serious: Yes (Death, Hospitalization)
  Sender: FDA-Public Use
  Company Number: SI-ROCHE-1300899

PATIENT
  Age: 80 Year
  Sex: Male

DRUGS (2)
  1. ACTILYSE [Suspect]
     Indication: THROMBOLYSIS
     Route: 042
  2. PRADAXA [Suspect]
     Indication: ATRIAL FIBRILLATION
     Dosage: STOPPED DATE: ONE WEEK BEFORE AE
     Route: 048

REACTIONS (3)
  - Death [Fatal]
  - Ischaemic stroke [Unknown]
  - Drug ineffective [Unknown]
